FAERS Safety Report 6133391-4 (Version None)
Quarter: 2009Q1

REPORT INFORMATION
  Report Type: 
  Country: None (occurrence: None)
  Receive Date: 20090324
  Receipt Date: 20090324
  Transmission Date: 20090719
  Serious: Yes (Other)
  Sender: FDA-Public Use
  Company Number: None

PATIENT
  Age: 35 Year
  Sex: Female
  Weight: 65.7716 kg

DRUGS (4)
  1. LEVAQUIN [Suspect]
     Indication: POSTNASAL DRIP
     Dosage: 1 TAB OD PO
     Route: 048
     Dates: start: 20090318, end: 20090323
  2. LEVAQUIN [Suspect]
     Indication: SINUSITIS
     Dosage: 1 TAB OD PO
     Route: 048
     Dates: start: 20090318, end: 20090323
  3. TUSSICAPS [Concomitant]
  4. SIMBACORT [Concomitant]

REACTIONS (5)
  - ANXIETY [None]
  - CONFUSIONAL STATE [None]
  - DIZZINESS [None]
  - MAJOR DEPRESSION [None]
  - PAIN [None]
